FAERS Safety Report 10150927 (Version 1)
Quarter: 2014Q2

REPORT INFORMATION
  Report Type: Spontaneous
  Country: US (occurrence: US)
  Receive Date: 20140502
  Receipt Date: 20140502
  Transmission Date: 20141212
  Serious: Yes (Other)
  Sender: FDA-Public Use
  Company Number: US-PFIZER INC-2014119340

PATIENT
  Age: 55 Year
  Sex: Female
  Weight: 93 kg

DRUGS (3)
  1. CHANTIX [Suspect]
     Indication: SMOKING CESSATION THERAPY
     Dosage: UNK
     Dates: start: 20140422
  2. AMITRIPTYLINE [Concomitant]
     Indication: PAIN IN EXTREMITY
     Dosage: 25 MG, DAILY
  3. FLUOXETINE [Concomitant]
     Indication: DEPRESSION
     Dosage: 20 MG, DAILY

REACTIONS (1)
  - Type 2 diabetes mellitus [Unknown]
